FAERS Safety Report 13089954 (Version 2)
Quarter: 2017Q1

REPORT INFORMATION
  Report Type: Report from Study
  Country: CA (occurrence: CA)
  Receive Date: 20170105
  Receipt Date: 20170215
  Transmission Date: 20170428
  Serious: Yes (Other)
  Sender: FDA-Public Use
  Company Number: CA-HLSUS-2017-CA-000006

PATIENT
  Age: 66 Year
  Sex: Male

DRUGS (1)
  1. CLOZARIL [Suspect]
     Active Substance: CLOZAPINE
     Route: 048
     Dates: start: 20161216, end: 20170204

REACTIONS (5)
  - Organic brain syndrome [Unknown]
  - Bulimia nervosa [Unknown]
  - Shock [Unknown]
  - Neutropenia [Recovered/Resolved]
  - Leukopenia [Unknown]

NARRATIVE: CASE EVENT DATE: 20170209
